FAERS Safety Report 24548866 (Version 3)
Quarter: 2025Q2

REPORT INFORMATION
  Report Type: Report from Study
  Country: CA (occurrence: CA)
  Receive Date: 20241025
  Receipt Date: 20250513
  Transmission Date: 20250717
  Serious: Yes (Hospitalization)
  Sender: BIOCON
  Company Number: CA-MYLANLABS-2023M1118224

PATIENT

DRUGS (3)
  1. HULIO [Suspect]
     Active Substance: ADALIMUMAB-FKJP
     Indication: Crohn^s disease
     Route: 058
     Dates: start: 20230421
  2. HULIO [Suspect]
     Active Substance: ADALIMUMAB-FKJP
     Route: 058
     Dates: start: 20230605
  3. TYLENOL [Concomitant]
     Active Substance: ACETAMINOPHEN
     Indication: Pyrexia
     Route: 065

REACTIONS (9)
  - Varicella [Unknown]
  - Influenza like illness [Recovering/Resolving]
  - Nasal congestion [Unknown]
  - Streptococcal infection [Recovering/Resolving]
  - Rash [Unknown]
  - Headache [Unknown]
  - Nasopharyngitis [Recovered/Resolved]
  - Inappropriate schedule of product administration [Unknown]
  - Device malfunction [Unknown]

NARRATIVE: CASE EVENT DATE: 20240714
